FAERS Safety Report 8862143 (Version 2)
Quarter: 2012Q4

REPORT INFORMATION
  Report Type: 
  Country: CN (occurrence: CN)
  Receive Date: 20121026
  Receipt Date: 20121102
  Transmission Date: 20130627
  Serious: Yes (Death)
  Sender: FDA-Public Use
  Company Number: CN-PFIZER INC-2012266511

PATIENT
  Age: 66 Year
  Sex: Male

DRUGS (1)
  1. SUTENT [Suspect]
     Indication: RENAL CELL CANCER
     Dosage: UNK
     Dates: start: 2011

REACTIONS (4)
  - Disease progression [Fatal]
  - Renal cell carcinoma [Fatal]
  - Lung infection [Fatal]
  - Respiratory failure [Fatal]
